FAERS Safety Report 6303465-3 (Version None)
Quarter: 2009Q3

REPORT INFORMATION
  Report Type: 
  Country: None (occurrence: None)
  Receive Date: 20090810
  Receipt Date: 20090728
  Transmission Date: 20100115
  Serious: Yes (Other)
  Sender: FDA-Public Use
  Company Number: PHHY2008AU29686

PATIENT
  Sex: Male

DRUGS (6)
  1. CLOZARIL [Suspect]
     Indication: SCHIZOAFFECTIVE DISORDER
     Dosage: UNK
     Dates: start: 19980101
  2. CLOZARIL [Suspect]
     Dosage: 700 MG NOCTE
  3. SERTRALINE [Concomitant]
     Dosage: 100 MG MANE
  4. LITHIUM CARBONATE [Concomitant]
     Dosage: 1,350 MG NOCTE
  5. RISPERIDONE [Concomitant]
     Dosage: 1 MG NOCTE
  6. CLONAZEPAM [Concomitant]
     Dosage: 1 MG MANE, 0.5 MG NOCTE

REACTIONS (2)
  - BLOOD TRIGLYCERIDES INCREASED [None]
  - BUNDLE BRANCH BLOCK RIGHT [None]
